FAERS Safety Report 16029463 (Version 1)
Quarter: 2019Q2

REPORT INFORMATION
  Report Type: Spontaneous
  Country: US (occurrence: US)
  Receive Date: 20190303
  Receipt Date: 20190303
  Transmission Date: 20190711
  Serious: Yes (Other)
  Sender: FDA-Public Use
  Company Number: None

PATIENT
  Age: 51 Year
  Sex: Female
  Weight: 68.85 kg

DRUGS (2)
  1. LEVOTHYROXINE GENERIC [Suspect]
     Active Substance: LEVOTHYROXINE
     Indication: HYPOTHYROIDISM
     Dosage: ?          QUANTITY:90 TABLET(S);?
     Route: 048
     Dates: start: 19870101, end: 20190225
  2. VITAMIN D NOS [Concomitant]
     Active Substance: VITAMIN D NOS

REACTIONS (7)
  - Arrhythmia [None]
  - Chest pain [None]
  - Nausea [None]
  - Dizziness [None]
  - Reaction to excipient [None]
  - Therapeutic product effect decreased [None]
  - Fatigue [None]

NARRATIVE: CASE EVENT DATE: 20190122
